FAERS Safety Report 8014480-6 (Version None)
Quarter: 2011Q4

REPORT INFORMATION
  Report Type: 
  Country: None (occurrence: None)
  Receive Date: 20111229
  Receipt Date: 20111220
  Transmission Date: 20120403
  Serious: Yes (Other)
  Sender: FDA-Public Use
  Company Number: US-ALLERGAN-1116594US

PATIENT
  Age: 55 Year
  Sex: Female

DRUGS (1)
  1. BOTULINUM TOXIN TYPE A [Suspect]
     Indication: DYSTONIA
     Dosage: 130 UNITS, SINGLE
     Route: 030
     Dates: start: 20110701, end: 20110701

REACTIONS (1)
  - TENDON RUPTURE [None]
